FAERS Safety Report 23633488 (Version 2)
Quarter: 2024Q2

REPORT INFORMATION
  Report Type: Spontaneous
  Country: IL (occurrence: IL)
  Receive Date: 20240314
  Receipt Date: 20240514
  Transmission Date: 20240716
  Serious: Yes (Hospitalization)
  Sender: FDA-Public Use
  Company Number: IL-002147023-NVSC2024IL051850

PATIENT
  Age: 50 Year
  Sex: Male

DRUGS (1)
  1. KESIMPTA [Suspect]
     Active Substance: OFATUMUMAB
     Indication: Multiple sclerosis
     Dosage: UNK (ONE YEAR AGO)
     Route: 065

REACTIONS (3)
  - Lymphocyte count decreased [Not Recovered/Not Resolved]
  - Pyrexia [Not Recovered/Not Resolved]
  - Familial mediterranean fever [Unknown]
